FAERS Safety Report 6532969-3 (Version None)
Quarter: 2010Q1

REPORT INFORMATION
  Report Type: 
  Country: None (occurrence: None)
  Receive Date: 20100111
  Receipt Date: 20100107
  Transmission Date: 20100710
  Serious: Yes (Other)
  Sender: FDA-Public Use
  Company Number: BR-ABBOTT-09P-020-0607092-00

PATIENT
  Sex: Female
  Weight: 54.8 kg

DRUGS (4)
  1. HUMIRA [Suspect]
     Indication: RHEUMATOID ARTHRITIS
     Route: 058
  2. DICLOFENAC SODIUM [Concomitant]
     Indication: SKIN IRRITATION
     Route: 061
     Dates: start: 20090601
  3. METHYL SALICYLATE/CAMPHOR/MENTHOL/TURPENTINE/MUSTARD/ROSEMARY/LAVENDER [Concomitant]
     Indication: SKIN IRRITATION
     Dosage: GELOL
     Route: 061
     Dates: start: 20090601
  4. ARAVA [Concomitant]
     Indication: RHEUMATOID ARTHRITIS
     Dosage: 1 PER DAY
     Route: 048

REACTIONS (12)
  - ABDOMINAL PAIN UPPER [None]
  - HEADACHE [None]
  - INJECTION SITE ERYTHEMA [None]
  - INJECTION SITE PRURITUS [None]
  - LIMB INJURY [None]
  - MEMORY IMPAIRMENT [None]
  - OEDEMA [None]
  - OSTEOPOROSIS [None]
  - PAIN [None]
  - PAIN IN EXTREMITY [None]
  - TREMOR [None]
  - VULVAL DISORDER [None]
